FAERS Safety Report 24461599 (Version 1)
Quarter: 2024Q4

REPORT INFORMATION
  Report Type: Report from Study
  Country: ZA (occurrence: ZA)
  Receive Date: 20241018
  Receipt Date: 20241018
  Transmission Date: 20250115
  Serious: No
  Sender: ROCHE
  Company Number: ZA-ROCHE-3576578

PATIENT
  Age: 52 Year
  Sex: Male
  Weight: 72.0 kg

DRUGS (1)
  1. RITUXIMAB [Suspect]
     Active Substance: RITUXIMAB
     Indication: Rheumatoid arthritis
     Dosage: ON DAYS 0 AND DAY 14 AND EVERY 6 MONTH
     Route: 041
     Dates: start: 20230329

REACTIONS (1)
  - Haemoglobin decreased [Unknown]
